FAERS Safety Report 5497982-6 (Version None)
Quarter: 2007Q4

REPORT INFORMATION
  Report Type: 
  Country: None (occurrence: None)
  Receive Date: 20071018
  Receipt Date: 20060828
  Transmission Date: 20080405
  Serious: Yes (Other)
  Sender: FDA-Public Use
  Company Number: 2006106586

PATIENT
  Sex: Male

DRUGS (1)
  1. NEURONTIN [Suspect]
     Indication: NEURALGIA

REACTIONS (17)
  - AFFECT LABILITY [None]
  - ASTHENIA [None]
  - BALANCE DISORDER [None]
  - CONJUNCTIVITIS [None]
  - DIARRHOEA [None]
  - DIZZINESS [None]
  - DRY MOUTH [None]
  - DYSPEPSIA [None]
  - EYE IRRITATION [None]
  - FATIGUE [None]
  - HEADACHE [None]
  - NAUSEA [None]
  - NERVOUSNESS [None]
  - NIGHT SWEATS [None]
  - SUICIDAL IDEATION [None]
  - THINKING ABNORMAL [None]
  - VISION BLURRED [None]
